FAERS Safety Report 4963006-X (Version None)
Quarter: 2006Q2

REPORT INFORMATION
  Report Type: 
  Country: None (occurrence: None)
  Receive Date: 20060405
  Receipt Date: 20060322
  Transmission Date: 20061013
  Serious: Yes (Other)
  Sender: FDA-Public Use
  Company Number: NL-JNJFOC-20060305873

PATIENT
  Age: 71 Year
  Sex: Female

DRUGS (7)
  1. REMINYL [Suspect]
     Indication: PARKINSON'S DISEASE
     Route: 065
  2. OXYBUTININE [Interacting]
     Indication: DRUG USE FOR UNKNOWN INDICATION
     Route: 065
  3. SINEMET [Concomitant]
     Route: 065
  4. SINEMET [Concomitant]
     Route: 065
  5. ARCOXIA [Concomitant]
     Route: 065
  6. ZOLPIDEMTARTRAAT [Concomitant]
     Dosage: IN THE EVENING
     Route: 065
  7. LACTULOSE [Concomitant]
     Route: 065

REACTIONS (8)
  - ABNORMAL BEHAVIOUR [None]
  - COGNITIVE DISORDER [None]
  - DELIRIUM [None]
  - DRUG INTERACTION [None]
  - FEELING ABNORMAL [None]
  - MALAISE [None]
  - ORAL INTAKE REDUCED [None]
  - UNRESPONSIVE TO VERBAL STIMULI [None]
